FAERS Safety Report 8601472-9 (Version None)
Quarter: 2012Q3

REPORT INFORMATION
  Report Type: 
  Country: None (occurrence: None)
  Receive Date: 20120817
  Receipt Date: 20110901
  Transmission Date: 20120928
  Serious: Yes (Hospitalization)
  Sender: FDA-Public Use
  Company Number: US-BRISTOL-MYERS SQUIBB COMPANY-16017865

PATIENT
  Age: 56 Year
  Sex: Female

DRUGS (4)
  1. SPRYCEL [Suspect]
     Indication: ACUTE LYMPHOCYTIC LEUKAEMIA
     Dosage: INTERRUPTED AND THEN RESTARTED ON 30 OR 31JUN11 WITH 70MG BID
     Dates: start: 20110201
  2. TACROLIMUS [Suspect]
  3. SYNTHROID [Concomitant]
  4. CELLCEPT [Suspect]
     Dates: start: 20110101

REACTIONS (5)
  - HYPOTENSION [None]
  - PLEURAL EFFUSION [None]
  - PULMONARY OEDEMA [None]
  - PYREXIA [None]
  - CHILLS [None]
